FAERS Safety Report 25908011 (Version 1)
Quarter: 2025Q4

REPORT INFORMATION
  Report Type: Spontaneous
  Country: US (occurrence: US)
  Receive Date: 20251010
  Receipt Date: 20251010
  Transmission Date: 20260118
  Serious: Yes (Hospitalization)
  Sender: MALLINCKRODT
  Company Number: US-MALLINCKRODT-MNK202506128

PATIENT
  Sex: Female
  Weight: 16 kg

DRUGS (8)
  1. CORTICOTROPIN [Suspect]
     Active Substance: CORTICOTROPIN
     Indication: Infantile spasms
     Route: 058
  2. EPIDIOLEX [Concomitant]
     Active Substance: CANNABIDIOL
     Dosage: UNKNOWN
  3. EPIDIOLEX [Concomitant]
     Active Substance: CANNABIDIOL
     Dosage: DOSE INCREASED
  4. VIGABATRIN [Concomitant]
     Active Substance: VIGABATRIN
     Dosage: UNKNOWN
  5. LEVETIRACETAM [Concomitant]
     Active Substance: LEVETIRACETAM
     Dosage: UNKNOWN
  6. FELBAMATE [Concomitant]
     Active Substance: FELBAMATE
     Dosage: UNKNOWN
  7. CHOLECALCIFEROL [Concomitant]
     Active Substance: CHOLECALCIFEROL
     Dosage: UNKNOWN
  8. FAMOTIDINE [Concomitant]
     Active Substance: FAMOTIDINE
     Dosage: UNKNOWN

REACTIONS (1)
  - Seizure [Unknown]
